FAERS Safety Report 10163115 (Version 5)
Quarter: 2014Q2

REPORT INFORMATION
  Report Type: Report from Study
  Country: CA (occurrence: CA)
  Receive Date: 20140509
  Receipt Date: 20140624
  Transmission Date: 20141212
  Serious: Yes (Life-Threatening, Hospitalization, Other)
  Sender: FDA-Public Use
  Company Number: CA-JNJFOC-20140414429

PATIENT
  Age: 75 Year
  Sex: Female
  Weight: 115 kg

DRUGS (11)
  1. REMICADE [Suspect]
     Indication: RHEUMATOID ARTHRITIS
     Route: 042
     Dates: start: 200912
  2. BENADRYL [Concomitant]
     Route: 042
  3. HYDROCORTISONE [Concomitant]
     Route: 042
  4. CRESTOR [Concomitant]
     Route: 065
  5. LANSOPRAZOLE [Concomitant]
     Route: 065
  6. FOLIC ACID [Concomitant]
     Route: 065
  7. VITAMIN B12 [Concomitant]
     Route: 065
  8. OLMESARTAN [Concomitant]
     Route: 065
  9. JANUVIA [Concomitant]
     Route: 065
  10. GLICLAZIDE [Concomitant]
     Route: 065
  11. AVAPRO [Concomitant]
     Route: 065

REACTIONS (4)
  - Pneumonia [Unknown]
  - Asthma [Unknown]
  - Thrombosis [Unknown]
  - Respiratory arrest [Unknown]
